FAERS Safety Report 7673777-X (Version None)
Quarter: 2011Q3

REPORT INFORMATION
  Report Type: 
  Country: None (occurrence: None)
  Receive Date: 20110810
  Receipt Date: 20110805
  Transmission Date: 20111222
  Serious: Yes (Hospitalization)
  Sender: FDA-Public Use
  Company Number: US-SANOFI-AVENTIS-2011SA050567

PATIENT
  Age: 68 Year
  Sex: Female

DRUGS (2)
  1. FEXOFENADINE HCL [Suspect]
     Route: 048
     Dates: start: 20080101
  2. PREVACID [Concomitant]

REACTIONS (1)
  - RENAL FAILURE [None]
